FAERS Safety Report 22590714 (Version 1)
Quarter: 2023Q2

REPORT INFORMATION
  Report Type: Report from Study
  Country: US (occurrence: US)
  Receive Date: 20230612
  Receipt Date: 20230612
  Transmission Date: 20230721
  Serious: Yes (Hospitalization, Other)
  Sender: FDA-Public Use
  Company Number: US-TAKEDA-2022TUS089167

PATIENT
  Age: 70 Year
  Sex: Male
  Weight: 75 kg

DRUGS (3)
  1. IXAZOMIB [Suspect]
     Active Substance: IXAZOMIB
     Indication: Plasma cell myeloma
     Dosage: 4 MILLIGRAM
     Route: 048
  2. DEXAMETHASONE [Concomitant]
     Active Substance: DEXAMETHASONE
     Indication: Neoplasm malignant
     Dosage: UNK
     Route: 065
  3. REVLIMID [Concomitant]
     Active Substance: LENALIDOMIDE
     Indication: Neoplasm malignant
     Dosage: UNK
     Route: 065

REACTIONS (3)
  - Loss of consciousness [Not Recovered/Not Resolved]
  - Illness [Not Recovered/Not Resolved]
  - Product dose omission issue [Unknown]

NARRATIVE: CASE EVENT DATE: 20230605
